FAERS Safety Report 9664501 (Version 2)
Quarter: 2013Q4

REPORT INFORMATION
  Report Type: Spontaneous
  Country: US (occurrence: US)
  Receive Date: 20131101
  Receipt Date: 20131204
  Transmission Date: 20140711
  Serious: Yes (Other)
  Sender: FDA-Public Use
  Company Number: US-UCBSA-101753

PATIENT
  Sex: Female
  Weight: 72.12 kg

DRUGS (14)
  1. CIMZIA [Suspect]
     Indication: RHEUMATOID ARTHRITIS
     Dosage: MAINTENANCE DOSE
     Dates: start: 2011
  2. METHOTREXATE [Concomitant]
     Indication: RHEUMATOID ARTHRITIS
     Dosage: 1 CC, TAKING 4 YEARS
  3. LYRICA [Concomitant]
     Indication: FIBROMYALGIA
     Dosage: AT NIGHT
     Route: 048
  4. TRAMADOL [Concomitant]
     Indication: BACK PAIN
     Dosage: 2 AT BEDTIME
     Route: 048
  5. COD LIVER OIL [Concomitant]
     Indication: NUTRITIONAL SUPPLEMENTATION
     Route: 048
  6. FOLIC ACID [Concomitant]
     Indication: NUTRITIONAL SUPPLEMENTATION
     Route: 048
  7. OMEPRAZOLE [Concomitant]
     Indication: GASTROOESOPHAGEAL REFLUX DISEASE
     Dosage: 2 AT ONCE A DAY
     Route: 048
  8. ACYCLOVIR [Concomitant]
     Indication: PROPHYLAXIS
     Route: 048
  9. ALLEGRA-D [Concomitant]
     Indication: SEASONAL ALLERGY
     Route: 048
  10. CALCIUM [Concomitant]
     Indication: OSTEOPENIA
     Route: 048
  11. ESTROVEN [Concomitant]
     Indication: HOT FLUSH
     Route: 048
  12. ESTROVEN [Concomitant]
     Indication: NIGHT SWEATS
     Route: 048
  13. AMITRIPTYLINE [Concomitant]
     Indication: SLEEP DISORDER
     Dosage: AT BEDTIME
     Route: 048
  14. FLAGYL [Concomitant]
     Route: 048
     Dates: end: 20131112

REACTIONS (5)
  - Colitis [Recovering/Resolving]
  - Cystitis [Recovered/Resolved]
  - Decreased appetite [Not Recovered/Not Resolved]
  - Asthenia [Recovering/Resolving]
  - Diverticulitis [Unknown]
